FAERS Safety Report 18135568 (Version 1)
Quarter: 2020Q3

REPORT INFORMATION
  Report Type: Report from Study
  Country: AR (occurrence: AR)
  Receive Date: 20200811
  Receipt Date: 20200811
  Transmission Date: 20201103
  Serious: Yes (Other)
  Sender: FDA-Public Use
  Company Number: PHHY2017AR152496

PATIENT
  Age: 58 Year
  Sex: Male

DRUGS (1)
  1. COSENTYX [Suspect]
     Active Substance: SECUKINUMAB
     Indication: PSORIASIS
     Dosage: 300 MG, QMO
     Route: 058
     Dates: start: 20170709, end: 20200301

REACTIONS (4)
  - Decreased immune responsiveness [Unknown]
  - Oral fungal infection [Unknown]
  - Psoriasis [Not Recovered/Not Resolved]
  - Hepatitis B [Recovering/Resolving]

NARRATIVE: CASE EVENT DATE: 201709
